FAERS Safety Report 9540928 (Version 2)
Quarter: 2013Q4

REPORT INFORMATION
  Report Type: Spontaneous
  Country: FR (occurrence: FR)
  Receive Date: 20130921
  Receipt Date: 20131120
  Transmission Date: 20140711
  Serious: Yes (Other)
  Sender: FDA-Public Use
  Company Number: FR-ROCHE-1277167

PATIENT
  Age: 65 Year
  Sex: Male

DRUGS (4)
  1. ZELBORAF [Suspect]
     Indication: METASTATIC MALIGNANT MELANOMA
     Route: 048
  2. LOCOID [Concomitant]
     Route: 003
     Dates: start: 20130913
  3. DESLORATADINE [Concomitant]
     Route: 048
     Dates: start: 20130909
  4. GRANUDOXY [Concomitant]
     Route: 048

REACTIONS (3)
  - Photosensitivity reaction [Not Recovered/Not Resolved]
  - Seborrhoeic dermatitis [Not Recovered/Not Resolved]
  - Eosinophilia [Not Recovered/Not Resolved]
